FAERS Safety Report 19896318 (Version 1)
Quarter: 2021Q3

REPORT INFORMATION
  Report Type: Spontaneous
  Country: US (occurrence: US)
  Receive Date: 20210929
  Receipt Date: 20210929
  Transmission Date: 20211014
  Serious: No
  Sender: FDA-Public Use
  Company Number: US-PFIZER INC-202101134155

PATIENT
  Age: 58 Year
  Sex: Female
  Weight: 50.8 kg

DRUGS (1)
  1. NICOTINE. [Suspect]
     Active Substance: NICOTINE
     Dosage: UNK
     Dates: start: 2021

REACTIONS (3)
  - Feeling abnormal [Unknown]
  - Dysgeusia [Recovered/Resolved]
  - Illness [Unknown]
